FAERS Safety Report 5618343-2 (Version None)
Quarter: 2008Q1

REPORT INFORMATION
  Report Type: 
  Country: None (occurrence: None)
  Receive Date: 20080205
  Receipt Date: 20080205
  Transmission Date: 20080703
  Serious: No
  Sender: FDA-Public Use
  Company Number: None

PATIENT
  Age: 73 Year
  Weight: 81.6475 kg

DRUGS (1)
  1. VYTORIN [Suspect]
     Indication: BLOOD CHOLESTEROL INCREASED
     Dosage: 1 PILL  1 PER DAY
     Dates: start: 20050415, end: 20080201

REACTIONS (3)
  - ARTERIAL OCCLUSIVE DISEASE [None]
  - RASH [None]
  - VASCULAR CALCIFICATION [None]
